FAERS Safety Report 4286569-9 (Version None)
Quarter: 2004Q1

REPORT INFORMATION
  Report Type: 
  Country: None (occurrence: None)
  Receive Date: 20040204
  Receipt Date: 20040127
  Transmission Date: 20041129
  Serious: Yes (Hospitalization)
  Sender: FDA-Public Use
  Company Number: HU-SHR-04-020266

PATIENT
  Age: 47 Year
  Sex: Female

DRUGS (1)
  1. MIRENA [Suspect]
     Indication: CONTRACEPTION
     Dosage: 20 UG, INTRA-UTERINE
     Route: 015
     Dates: start: 20030728, end: 20031112

REACTIONS (1)
  - UTERINE LEIOMYOMA [None]
